FAERS Safety Report 6650992-5 (Version None)
Quarter: 2010Q1

REPORT INFORMATION
  Report Type: 
  Country: None (occurrence: None)
  Receive Date: 20100325
  Receipt Date: 20100312
  Transmission Date: 20100710
  Serious: No
  Sender: FDA-Public Use
  Company Number: US-BIOGENIDEC-2010BI009099

PATIENT
  Age: 36 Year
  Sex: Male

DRUGS (1)
  1. TYSABRI [Suspect]
     Indication: MULTIPLE SCLEROSIS
     Route: 042
     Dates: start: 20080303, end: 20091215

REACTIONS (6)
  - BURNING SENSATION [None]
  - CARPAL TUNNEL SYNDROME [None]
  - CUBITAL TUNNEL SYNDROME [None]
  - DRUG INTOLERANCE [None]
  - DYSKINESIA [None]
  - PARAESTHESIA [None]
